FAERS Safety Report 20056181 (Version 1)
Quarter: 2021Q4

REPORT INFORMATION
  Report Type: Spontaneous
  Country: US (occurrence: US)
  Receive Date: 20211111
  Receipt Date: 20211111
  Transmission Date: 20220303
  Serious: No
  Sender: FDA-Public Use
  Company Number: US-drreddys-SPO/USA/21/0143563

PATIENT
  Age: 65 Year
  Sex: Male

DRUGS (1)
  1. DOCETAXEL [Suspect]
     Active Substance: DOCETAXEL
     Indication: Prostate cancer stage II

REACTIONS (4)
  - Leukonychia [Recovering/Resolving]
  - Paronychia [Recovering/Resolving]
  - Ingrowing nail [Recovering/Resolving]
  - Onycholysis [Recovering/Resolving]
